FAERS Safety Report 4386919-9 (Version None)
Quarter: 2004Q2

REPORT INFORMATION
  Report Type: 
  Country: None (occurrence: None)
  Receive Date: 20040623
  Receipt Date: 20040611
  Transmission Date: 20050107
  Serious: Yes (Hospitalization)
  Sender: FDA-Public Use
  Company Number: 2004UW09938

PATIENT
  Age: 57 Year
  Sex: Male
  Weight: 112.4921 kg

DRUGS (24)
  1. ZESTRIL [Suspect]
     Indication: HYPERTENSION
     Dosage: 10 MG QD PO
     Route: 048
     Dates: end: 20040421
  2. ZESTRIL [Suspect]
     Indication: HYPERTENSION
     Dosage: HIGHER THAN ADMISSION
  3. ZESTRIL [Suspect]
     Indication: HYPERTENSION
     Dosage: 5 MG BID PO
     Route: 048
     Dates: start: 20040503
  4. NAMENDA [Suspect]
     Indication: SENILE DEMENTIA
     Dosage: 5 MG BID PO
     Route: 048
     Dates: start: 20040401, end: 20040426
  5. NAMENDA [Suspect]
     Indication: SENILE DEMENTIA
     Dosage: 10 MG QAM PO
     Route: 048
     Dates: start: 20040427
  6. NAMENDA [Suspect]
     Indication: SENILE DEMENTIA
     Dosage: 5 MG HS PO
     Route: 048
     Dates: start: 20040427
  7. NAMENDA [Suspect]
     Indication: SENILE DEMENTIA
     Dosage: 5 MG QD PO
     Route: 048
     Dates: start: 20040418, end: 20040401
  8. KLONOPIN [Concomitant]
  9. SENOKOT [Concomitant]
  10. VIOXX [Concomitant]
  11. QUININE [Concomitant]
  12. PROTONIX [Concomitant]
  13. ARICEPT [Concomitant]
  14. SINEMET CR [Concomitant]
  15. DEPAKOTE [Concomitant]
  16. FLOMAX ^BOEHRINGER INGELHEIM^ [Concomitant]
  17. EFFEXOR XR [Concomitant]
  18. MIRAPEX [Concomitant]
  19. LEVAQUIN [Concomitant]
  20. CLONIDINE HCL [Concomitant]
  21. MYLANTA [Concomitant]
  22. MILK OF MAGNESIA TAB [Concomitant]
  23. TYLENOL [Concomitant]
  24. NEURONTIN [Concomitant]

REACTIONS (16)
  - AGITATION [None]
  - CARDIAC FAILURE CONGESTIVE [None]
  - CEREBRAL VENTRICLE DILATATION [None]
  - CHEST WALL PAIN [None]
  - CONFUSIONAL STATE [None]
  - DEHYDRATION [None]
  - DEPRESSED LEVEL OF CONSCIOUSNESS [None]
  - EFFUSION [None]
  - FALL [None]
  - HAEMOGLOBIN DECREASED [None]
  - HYPOTENSION [None]
  - LUNG INFILTRATION [None]
  - MARKEDLY REDUCED DIETARY INTAKE [None]
  - ORTHOSTATIC HYPOTENSION [None]
  - PULMONARY OEDEMA [None]
  - RED BLOOD CELL COUNT DECREASED [None]
